FAERS Safety Report 20775349 (Version 1)
Quarter: 2022Q2

REPORT INFORMATION
  Report Type: Report from Study
  Country: BR (occurrence: BR)
  Receive Date: 20220502
  Receipt Date: 20220502
  Transmission Date: 20220721
  Serious: Yes (Hospitalization, Other)
  Sender: FDA-Public Use
  Company Number: BR-NOVARTISPH-NVSC2022BR024294

PATIENT
  Age: 54 Year
  Sex: Female

DRUGS (4)
  1. AFINITOR [Suspect]
     Active Substance: EVEROLIMUS
     Indication: Breast cancer metastatic
     Dosage: 10 MG, QD
     Route: 065
     Dates: start: 202106
  2. AFINITOR [Suspect]
     Active Substance: EVEROLIMUS
     Dosage: 10 MG, QD
     Route: 065
     Dates: start: 20220103
  3. AFINITOR [Suspect]
     Active Substance: EVEROLIMUS
     Dosage: 5 MG, QD
     Route: 065
  4. AFINITOR [Suspect]
     Active Substance: EVEROLIMUS
     Dosage: UNK (STOP DATE: A MONTH AGO)
     Route: 065
     Dates: start: 20210701

REACTIONS (25)
  - Diarrhoea [Recovered/Resolved]
  - Cataract [Unknown]
  - Vision blurred [Recovering/Resolving]
  - Dizziness [Recovering/Resolving]
  - Oral discomfort [Unknown]
  - Eating disorder [Unknown]
  - Mass [Unknown]
  - Gingival ulceration [Unknown]
  - Oral pain [Unknown]
  - Mouth ulceration [Recovered/Resolved]
  - Dyspnoea [Unknown]
  - Tongue ulceration [Unknown]
  - Stomatitis [Unknown]
  - Cheilitis [Unknown]
  - Mouth ulceration [Not Recovered/Not Resolved]
  - Nodule [Unknown]
  - Memory impairment [Unknown]
  - Anxiety [Unknown]
  - Feeling abnormal [Unknown]
  - Enzyme level increased [Recovering/Resolving]
  - Spinal disorder [Unknown]
  - Flatulence [Unknown]
  - Asthenia [Unknown]
  - Weight decreased [Unknown]
  - Rash macular [Unknown]

NARRATIVE: CASE EVENT DATE: 20220128
